FAERS Safety Report 8839747 (Version 1)
Quarter: 2012Q4

REPORT INFORMATION
  Report Type: 
  Country: IE (occurrence: None)
  Receive Date: 20121011
  Receipt Date: 20121011
  Transmission Date: 20130627
  Serious: Yes (Other)
  Sender: FDA-Public Use
  Company Number: 2012SP003052

PATIENT

DRUGS (1)
  1. VANCOMYCIN [Suspect]
     Indication: INFECTION

REACTIONS (2)
  - Pathogen resistance [None]
  - Drug ineffective [None]
